FAERS Safety Report 26152351 (Version 1)
Quarter: 2025Q4

REPORT INFORMATION
  Report Type: Spontaneous
  Country: GB (occurrence: GB)
  Receive Date: 20251214
  Receipt Date: 20251214
  Transmission Date: 20260118
  Serious: Yes (Other)
  Sender: SANDOZ
  Company Number: None

PATIENT
  Age: 73 Year
  Sex: Female
  Weight: 96 kg

DRUGS (4)
  1. EZETIMIBE [Suspect]
     Active Substance: EZETIMIBE
     Indication: Ill-defined disorder
     Dosage: UNK
     Route: 065
     Dates: start: 20251211
  2. EZETIMIBE [Concomitant]
     Active Substance: EZETIMIBE
     Indication: Ill-defined disorder
     Dosage: TAKE ONE TABLET ONCE A DAY TO HELP LOWER CHOLES...
     Route: 065
     Dates: start: 20251106
  3. IBUPROFEN [Concomitant]
     Active Substance: IBUPROFEN
     Indication: Ill-defined disorder
     Dosage: APPLY 3-4 TIMES/DAY
     Route: 065
     Dates: start: 20250512
  4. ROSUVASTATIN [Concomitant]
     Active Substance: ROSUVASTATIN
     Indication: Ill-defined disorder
     Dosage: TAKE ONE TABLET EACH DAY TO HELP LOWER CHOLESTEROL
     Route: 065
     Dates: start: 20250905, end: 20251106

REACTIONS (3)
  - Swollen tongue [Recovering/Resolving]
  - Dyspnoea [Recovering/Resolving]
  - Oral pain [Recovering/Resolving]

NARRATIVE: CASE EVENT DATE: 20251211
